FAERS Safety Report 4677611-1 (Version None)
Quarter: 2005Q2

REPORT INFORMATION
  Report Type: 
  Country: None (occurrence: None)
  Receive Date: 20050526
  Receipt Date: 20050526
  Transmission Date: 20051028
  Serious: Yes (Life-Threatening, Hospitalization)
  Sender: FDA-Public Use
  Company Number: None

PATIENT
  Age: 58 Year
  Sex: Male
  Weight: 108.8633 kg

DRUGS (1)
  1. BEXTRA [Suspect]
     Dosage: 20 MG - ONE A DAY

REACTIONS (5)
  - ANAEMIA [None]
  - CARDIAC FAILURE CONGESTIVE [None]
  - CARDIAC STRESS TEST ABNORMAL [None]
  - EJECTION FRACTION DECREASED [None]
  - GASTROINTESTINAL HAEMORRHAGE [None]
